FAERS Safety Report 18868166 (Version 1)
Quarter: 2021Q1

REPORT INFORMATION
  Report Type: Spontaneous
  Country: CH (occurrence: CH)
  Receive Date: 20210209
  Receipt Date: 20210209
  Transmission Date: 20210420
  Serious: Yes (Hospitalization)
  Sender: FDA-Public Use
  Company Number: CH-009507513-2102CHE000931

PATIENT
  Age: 66 Year
  Sex: Male

DRUGS (13)
  1. TARGIN [Concomitant]
     Active Substance: NALOXONE HYDROCHLORIDE\OXYCODONE HYDROCHLORIDE
     Dosage: 2 TABLETS TWICE DAILY
     Route: 048
  2. NOVALGIN (DIPYRONE) [Concomitant]
     Active Substance: DIPYRONE
     Dosage: AS NECESSARY
     Route: 048
     Dates: end: 20210106
  3. CARBOPLATIN. [Suspect]
     Active Substance: CARBOPLATIN
     Dosage: 29.12.2020 (1.CYCLE) AND 19.01.2021 (2. CYCLE); CYCLICAL
     Route: 042
     Dates: start: 20201229
  4. PANTOPRAZOL SANDOZ [Concomitant]
     Active Substance: PANTOPRAZOLE SODIUM
     Dosage: 20 MILLIGRAM, QD
     Route: 048
  5. POLYETHYLENE GLYCOL 400 [Concomitant]
     Active Substance: POLYETHYLENE GLYCOL 400
     Dosage: AS NECESSARY
     Route: 048
  6. ANDREAFOL [Concomitant]
     Dosage: 0.4 MILLIGRAM, ONCE DAILY
     Route: 048
  7. KEYTRUDA [Suspect]
     Active Substance: PEMBROLIZUMAB
     Indication: NON-SMALL CELL LUNG CANCER
     Dosage: 29.12.2020 (1.CYCLE) AND 19.01.2021 (2. CYCLE); CYCLICAL
     Route: 042
     Dates: start: 20201229
  8. VOLTAREN [Concomitant]
     Active Substance: DICLOFENAC SODIUM
     Dosage: 75 MILLIGRAM, TIWICE DAILY/EXTENDED?RELEASE DRAG?ES
     Route: 048
  9. CLEXANE (ENOXAPARIN SODIUM) [Suspect]
     Active Substance: ENOXAPARIN SODIUM
     Indication: THROMBOSIS PROPHYLAXIS
     Dosage: 80 MILLIGRAM, Q12H
     Route: 058
  10. NOVALGIN (DIPYRONE) [Concomitant]
     Active Substance: DIPYRONE
     Dosage: AS NECESSARY
     Route: 048
     Dates: start: 20210111
  11. ALIMTA [Suspect]
     Active Substance: PEMETREXED DISODIUM
     Indication: NON-SMALL CELL LUNG CANCER
     Dosage: IN TOTAL
     Route: 042
     Dates: start: 20201229, end: 20201229
  12. OXYNORM [Concomitant]
     Active Substance: OXYCODONE HYDROCHLORIDE
     Dosage: AS NECESSARY
     Route: 048
  13. RELVAR ELLIPTA [Concomitant]
     Active Substance: FLUTICASONE FUROATE\VILANTEROL TRIFENATATE
     Dosage: INHALATION ONCE DAILY
     Route: 055

REACTIONS (4)
  - Mucosal inflammation [Recovered/Resolved]
  - Rash [Recovered/Resolved]
  - Petechiae [Recovered/Resolved]
  - Pancytopenia [Recovered/Resolved]

NARRATIVE: CASE EVENT DATE: 202101
